FAERS Safety Report 6636019-X (Version None)
Quarter: 2010Q1

REPORT INFORMATION
  Report Type: 
  Country: None (occurrence: None)
  Receive Date: 20100316
  Receipt Date: 20100303
  Transmission Date: 20100710
  Serious: Yes (Hospitalization)
  Sender: FDA-Public Use
  Company Number: PHHY2010PL12189

PATIENT
  Sex: Male
  Weight: 85 kg

DRUGS (2)
  1. ZOLEDRONATE T29581++BM [Suspect]
     Dosage: 4 MG/ 28 DAYS
     Route: 042
     Dates: start: 20090917, end: 20100129
  2. SUTENT [Concomitant]
     Indication: RENAL CANCER
     Dosage: 1 TABLET PER DAY FOR 28 DAYS AND THEN 14 DAYS BREAK
     Route: 042
     Dates: start: 20090917, end: 20100129

REACTIONS (1)
  - OSTEONECROSIS [None]
